FAERS Safety Report 11772104 (Version 1)
Quarter: 2015Q4

REPORT INFORMATION
  Report Type: Other
  Country: IT (occurrence: IT)
  Receive Date: 20151124
  Receipt Date: 20151124
  Transmission Date: 20160304
  Serious: Yes (Death)
  Sender: FDA-Public Use
  Company Number: IT-MYLANLABS-2015M1040691

PATIENT

DRUGS (2)
  1. CAPECITABINA MYLAN [Suspect]
     Active Substance: CAPECITABINE
     Indication: RECTAL ADENOCARCINOMA
     Dosage: 3800 MG, CYCLE
     Route: 048
     Dates: start: 20150921, end: 20150925
  2. OXALIPLATINO ACCORD [Concomitant]
     Active Substance: OXALIPLATIN
     Indication: PRODUCT USED FOR UNKNOWN INDICATION
     Dosage: 243 MG, UNK
     Route: 042
     Dates: start: 20150921, end: 20150921

REACTIONS (2)
  - Chest pain [Fatal]
  - Loss of consciousness [Fatal]

NARRATIVE: CASE EVENT DATE: 20150926
